FAERS Safety Report 18491771 (Version 2)
Quarter: 2021Q1

REPORT INFORMATION
  Report Type: Spontaneous
  Country: US (occurrence: US)
  Receive Date: 20201111
  Receipt Date: 20210131
  Transmission Date: 20210419
  Serious: Yes (Death, Hospitalization, Other)
  Sender: FDA-Public Use
  Company Number: US-PURDUE-USA-2020-0174162

PATIENT
  Sex: Female

DRUGS (2)
  1. OXYCONTIN [Suspect]
     Active Substance: OXYCODONE HYDROCHLORIDE
     Indication: NECK PAIN
     Dosage: UNK
     Route: 048
  2. OXYCONTIN [Suspect]
     Active Substance: OXYCODONE HYDROCHLORIDE
     Indication: BACK PAIN

REACTIONS (11)
  - Muscle disorder [Unknown]
  - Developmental delay [Unknown]
  - Somnolence [Unknown]
  - Emotional distress [Unknown]
  - Hospitalisation [Unknown]
  - Weight decreased [Unknown]
  - Pain [Unknown]
  - Cardiac failure [Fatal]
  - Drug dependence [Unknown]
  - Cardiac disorder [Unknown]
  - Disturbance in attention [Unknown]
